FAERS Safety Report 8259317-5 (Version None)
Quarter: 2012Q2

REPORT INFORMATION
  Report Type: 
  Country: None (occurrence: None)
  Receive Date: 20120404
  Receipt Date: 20120330
  Transmission Date: 20120825
  Serious: Yes (Hospitalization, Other)
  Sender: FDA-Public Use
  Company Number: US-BAYER-2011-101014

PATIENT
  Age: 30 Year
  Sex: Female
  Weight: 83.9 kg

DRUGS (11)
  1. VICODIN [Concomitant]
  2. CYMBALTA [Concomitant]
     Indication: DEPRESSION
     Dosage: 60 MG, QD
     Dates: start: 20100301
  3. IBUPROFEN [Concomitant]
     Dosage: 800 MG, PRN
     Dates: start: 20100310
  4. ERRIN [Concomitant]
     Dosage: UNK
     Dates: end: 20090901
  5. ZANTAC [Concomitant]
     Dosage: UNK
     Dates: start: 20090114
  6. NSAID'S [Concomitant]
     Indication: ANALGESIC THERAPY
     Dosage: UNK UNK, PRN
  7. DROSPIRENONE AND ETHINYL ESTRADIOL [Suspect]
     Indication: ACNE
     Dosage: UNK
     Dates: start: 20090201, end: 20090901
  8. DROSPIRENONE AND ETHINYL ESTRADIOL [Suspect]
     Indication: PREMENSTRUAL SYNDROME
  9. HYDROCODONE BITARTRATE [Concomitant]
     Indication: PAIN
     Dosage: 500 MG, PRN
     Dates: start: 20100301
  10. NEXIUM [Concomitant]
     Dosage: 40 MG, QD
     Dates: start: 20100301
  11. ELMIRON [Concomitant]
     Dosage: 100 MG, TID
     Dates: start: 20100310

REACTIONS (8)
  - DEEP VEIN THROMBOSIS [None]
  - PAIN [None]
  - CEREBROVASCULAR ACCIDENT [None]
  - ANXIETY [None]
  - DEPRESSION [None]
  - PULMONARY EMBOLISM [None]
  - MYOCARDIAL INFARCTION [None]
  - GALLBLADDER DISORDER [None]
